FAERS Safety Report 6677220-9 (Version None)
Quarter: 2010Q2

REPORT INFORMATION
  Report Type: 
  Country: None (occurrence: None)
  Receive Date: 20100408
  Receipt Date: 20100408
  Transmission Date: 20101027
  Serious: Yes (Other)
  Sender: FDA-Public Use
  Company Number: None

PATIENT
  Sex: Male
  Weight: 96.1626 kg

DRUGS (1)
  1. BENICAR [Suspect]
     Indication: BLOOD PRESSURE INCREASED
     Dosage: 20MG ONCE DAY MOUTH
     Route: 048
     Dates: end: 20100317

REACTIONS (11)
  - ABDOMINAL PAIN [None]
  - ARTHRALGIA [None]
  - BACK PAIN [None]
  - FATIGUE [None]
  - HEADACHE [None]
  - INSOMNIA [None]
  - MEMORY IMPAIRMENT [None]
  - NAUSEA [None]
  - OEDEMA PERIPHERAL [None]
  - VISION BLURRED [None]
  - WEIGHT INCREASED [None]
